FAERS Safety Report 7418049-3 (Version None)
Quarter: 2011Q2

REPORT INFORMATION
  Report Type: 
  Country: None (occurrence: None)
  Receive Date: 20110415
  Receipt Date: 20110408
  Transmission Date: 20111010
  Serious: Yes (Hospitalization)
  Sender: FDA-Public Use
  Company Number: US-SANOFI-AVENTIS-2010SA032583

PATIENT
  Age: 80 Year
  Sex: Male
  Weight: 68.5 kg

DRUGS (19)
  1. TAXOTERE [Suspect]
     Indication: PROSTATE CANCER
     Route: 041
     Dates: start: 20070625, end: 20070625
  2. INVESTIGATIONAL DRUG [Suspect]
     Indication: PROSTATE CANCER
     Route: 042
     Dates: start: 20070625, end: 20070625
  3. INVESTIGATIONAL DRUG [Suspect]
     Route: 042
  4. PREDNISONE [Suspect]
     Indication: PROSTATE CANCER
     Route: 048
     Dates: start: 20070625
  5. LUPRON [Concomitant]
     Dates: start: 20020901
  6. ATENOLOL [Concomitant]
     Dates: start: 20060801
  7. VASOTEC [Concomitant]
     Dates: start: 20050101
  8. DECADRON [Concomitant]
     Dates: start: 20070314
  9. NEXIUM [Concomitant]
  10. SENOKOT /UNK/ [Concomitant]
     Dates: start: 20070409
  11. TAXOTERE [Suspect]
     Dosage: REDUCED DOSE
     Route: 041
     Dates: start: 20070716, end: 20070716
  12. LACTOBACILLUS ACIDOPHILUS [Concomitant]
  13. CALCIUM CARBONATE [Concomitant]
     Dates: start: 20070314
  14. INVESTIGATIONAL DRUG [Suspect]
     Route: 042
     Dates: start: 20070716, end: 20070716
  15. COLACE [Concomitant]
     Dates: start: 20070409
  16. LOPERAMIDE HYDROCHLORIDE [Concomitant]
     Dates: start: 20070409
  17. ZOMETA [Concomitant]
     Dates: start: 20070314
  18. OS-CAL [Concomitant]
     Dates: start: 20070301
  19. ZETIA [Concomitant]
     Dates: start: 20060101

REACTIONS (3)
  - CHEST PAIN [None]
  - NEUTROPENIA [None]
  - HYPONATRAEMIA [None]
